FAERS Safety Report 7206346-6 (Version None)
Quarter: 2011Q1

REPORT INFORMATION
  Report Type: 
  Country: None (occurrence: None)
  Receive Date: 20110103
  Receipt Date: 20110103
  Transmission Date: 20110831
  Serious: Yes (Other)
  Sender: FDA-Public Use
  Company Number: PHHO2008FR10616

PATIENT
  Sex: Female

DRUGS (2)
  1. SANDOSTATIN LAR [Suspect]
     Indication: CARCINOID SYNDROME
     Dosage: UNK
     Dates: start: 20070711, end: 20080806
  2. PLACEBO [Suspect]
     Indication: CARCINOID SYNDROME
     Dosage: PLACEBO
     Dates: start: 20070712, end: 20080829

REACTIONS (1)
  - PULMONARY EMBOLISM [None]
